FAERS Safety Report 11291740 (Version 1)
Quarter: 2015Q3

REPORT INFORMATION
  Report Type: Spontaneous
  Country: GB (occurrence: GB)
  Receive Date: 20150722
  Receipt Date: 20150722
  Transmission Date: 20151125
  Serious: Yes (Other)
  Sender: FDA-Public Use
  Company Number: GB-PFIZER INC-2015235810

PATIENT
  Age: 61 Year
  Sex: Female
  Weight: 62 kg

DRUGS (4)
  1. FLUCLOXACILLIN [Concomitant]
     Active Substance: FLUCLOXACILLIN
     Dosage: 1 DF, 4X/DAY
     Dates: start: 20150506, end: 20150513
  2. METRONIDAZOLE. [Concomitant]
     Active Substance: METRONIDAZOLE
     Dosage: 1 DF, 3X/DAY
     Dates: start: 20150506, end: 20150513
  3. OILATUM [Concomitant]
     Dosage: 1 DF, USE TWICE WEEKLY
     Dates: start: 20140108
  4. ATORVASTATIN CALCIUM. [Suspect]
     Active Substance: ATORVASTATIN CALCIUM
     Dosage: UNK
     Dates: start: 20141001

REACTIONS (2)
  - Skin irritation [Unknown]
  - Alopecia [Unknown]

NARRATIVE: CASE EVENT DATE: 20150703
